FAERS Safety Report 5382206-0 (Version None)
Quarter: 2007Q3

REPORT INFORMATION
  Report Type: 
  Country: None (occurrence: None)
  Receive Date: 20070709
  Receipt Date: 20070627
  Transmission Date: 20080115
  Serious: Yes (Other)
  Sender: FDA-Public Use
  Company Number: JP-PFIZER INC-2007053456

PATIENT
  Age: 29 Year
  Sex: Female

DRUGS (1)
  1. ZITHROMAC [Suspect]
     Indication: TOOTH EXTRACTION
     Route: 048

REACTIONS (2)
  - ABDOMINAL PAIN [None]
  - LOSS OF CONSCIOUSNESS [None]
